FAERS Safety Report 4987506-1 (Version None)
Quarter: 2006Q2

REPORT INFORMATION
  Report Type: 
  Country: None (occurrence: None)
  Receive Date: 20060501
  Receipt Date: 20050930
  Transmission Date: 20061013
  Serious: Yes (Death, Hospitalization, Other)
  Sender: FDA-Public Use
  Company Number: US-MERCK-0510USA01377

PATIENT
  Age: 64 Year
  Sex: Female
  Weight: 55 kg

DRUGS (3)
  1. VIOXX [Suspect]
     Indication: SHOULDER PAIN
     Route: 048
     Dates: start: 20020101, end: 20030501
  2. VIOXX [Suspect]
     Route: 048
     Dates: start: 20020101, end: 20021001
  3. ASPIRIN [Concomitant]
     Route: 065

REACTIONS (13)
  - CEREBROVASCULAR ACCIDENT [None]
  - DIABETES MELLITUS [None]
  - DIABETIC COMPLICATION [None]
  - GASTRIC DISORDER [None]
  - HAEMODIALYSIS [None]
  - MALNUTRITION [None]
  - MULTI-ORGAN FAILURE [None]
  - MYOCARDIAL INFARCTION [None]
  - NEOPLASM MALIGNANT [None]
  - PERIPHERAL VASCULAR DISORDER [None]
  - POST GASTRIC SURGERY SYNDROME [None]
  - RENAL FAILURE CHRONIC [None]
  - VASCULAR OCCLUSION [None]
